FAERS Safety Report 8918624 (Version 2)
Quarter: 2012Q4

REPORT INFORMATION
  Report Type: Report from Study
  Country: US (occurrence: US)
  Receive Date: 20121120
  Receipt Date: 20121206
  Transmission Date: 20130627
  Serious: Yes (Hospitalization)
  Sender: FDA-Public Use
  Company Number: US-JNJFOC-20121108497

PATIENT
  Age: 15 Year
  Sex: Female
  Weight: 40.5 kg

DRUGS (5)
  1. REMICADE [Suspect]
     Indication: INFLAMMATORY BOWEL DISEASE
     Route: 042
  2. HUMIRA [Concomitant]
     Dates: start: 20110924
  3. NEXIUM [Concomitant]
  4. CALCIUM CARBONATE [Concomitant]
  5. CHOLECALCIFEROL [Concomitant]

REACTIONS (1)
  - Ileal stenosis [Recovered/Resolved]
